FAERS Safety Report 15291105 (Version 3)
Quarter: 2018Q3

REPORT INFORMATION
  Report Type: Spontaneous
  Country: US (occurrence: US)
  Receive Date: 20180817
  Receipt Date: 20180905
  Transmission Date: 20181010
  Serious: Yes (Hospitalization, Other)
  Sender: FDA-Public Use
  Company Number: US-VIFOR (INTERNATIONAL) INC.-VIT-2018-08149

PATIENT
  Age: 60 Year
  Sex: Female

DRUGS (13)
  1. FERROUS SULFATE. [Concomitant]
     Active Substance: FERROUS SULFATE
  2. TRESIBA [Concomitant]
     Active Substance: INSULIN DEGLUDEC
  3. VITAMIN D [Concomitant]
     Active Substance: CHOLECALCIFEROL
  4. HYDRALAZINE HCL [Concomitant]
     Active Substance: HYDRALAZINE HYDROCHLORIDE
  5. TRULANCE [Concomitant]
     Active Substance: PLECANATIDE
  6. FUROSEMIDE. [Concomitant]
     Active Substance: FUROSEMIDE
  7. PROCRIT [Concomitant]
     Active Substance: ERYTHROPOIETIN
  8. PHOSLO [Concomitant]
     Active Substance: CALCIUM ACETATE
  9. VELTASSA [Suspect]
     Active Substance: PATIROMER
     Indication: HYPERKALAEMIA
     Route: 048
     Dates: start: 20180417, end: 2018
  10. ALLOPURINOL. [Concomitant]
     Active Substance: ALLOPURINOL
  11. NOVOLOG [Concomitant]
     Active Substance: INSULIN ASPART
  12. METOLAZONE. [Concomitant]
     Active Substance: METOLAZONE
  13. CARVEDILOL. [Concomitant]
     Active Substance: CARVEDILOL

REACTIONS (2)
  - Hospitalisation [Unknown]
  - Dialysis [Unknown]

NARRATIVE: CASE EVENT DATE: 20180701
